FAERS Safety Report 12132580 (Version 1)
Quarter: 2016Q1

REPORT INFORMATION
  Report Type: Spontaneous
  Country: JP (occurrence: JP)
  Receive Date: 20160301
  Receipt Date: 20160301
  Transmission Date: 20160526
  Serious: Yes (Death)
  Sender: FDA-Public Use
  Company Number: JP-MALLINCKRODT-T201600652

PATIENT
  Age: 70 Year
  Sex: Male
  Weight: 59 kg

DRUGS (9)
  1. CALONAL [Concomitant]
     Active Substance: ACETAMINOPHEN
     Indication: ANALGESIC THERAPY
     Dosage: 2000 MG
     Route: 048
     Dates: end: 20150406
  2. METHADONE [Suspect]
     Active Substance: METHADONE HYDROCHLORIDE
     Indication: CANCER PAIN
     Dosage: 10 MG (30 MG DAILY DOSE)
     Route: 048
     Dates: start: 20150403, end: 20150405
  3. DAONIL [Concomitant]
     Active Substance: GLYBURIDE
     Dosage: 1.25 MG
     Route: 048
     Dates: end: 20150407
  4. METHADONE [Suspect]
     Active Substance: METHADONE HYDROCHLORIDE
     Dosage: 10 MG (20 MG DAILY DOSE)
     Route: 048
     Dates: start: 20150406, end: 20150407
  5. METFORMIN [Concomitant]
     Active Substance: METFORMIN HYDROCHLORIDE
     Dosage: 500 MG
     Route: 048
     Dates: end: 20150407
  6. OXIFAST [Concomitant]
     Active Substance: OXYCODONE
     Indication: ANALGESIC THERAPY
     Dosage: 5 MG PRN
     Route: 051
     Dates: start: 20150402
  7. TAKEPRON [Concomitant]
     Active Substance: LANSOPRAZOLE
     Dosage: 15 MG
     Route: 048
     Dates: end: 20150406
  8. HYPEN [Concomitant]
     Active Substance: ETODOLAC
     Indication: ANALGESIC THERAPY
     Dosage: 400 MG
     Route: 048
     Dates: start: 20150406, end: 20150407
  9. BASEN [Concomitant]
     Active Substance: VOGLIBOSE
     Dosage: 0.3 MG
     Route: 048
     Dates: end: 20150407

REACTIONS (2)
  - Lymphoma [Fatal]
  - Somnolence [Recovering/Resolving]

NARRATIVE: CASE EVENT DATE: 20150405
